FAERS Safety Report 7355219-7 (Version None)
Quarter: 2011Q1

REPORT INFORMATION
  Report Type: 
  Country: None (occurrence: None)
  Receive Date: 20110316
  Receipt Date: 20110308
  Transmission Date: 20110831
  Serious: Yes (Death, Hospitalization)
  Sender: FDA-Public Use
  Company Number: JP-AMGEN-JPNCT2011011063

PATIENT
  Age: 64 Year
  Sex: Female
  Weight: 62 kg

DRUGS (8)
  1. FUROSEMIDE [Concomitant]
     Route: 048
  2. PANITUMUMAB [Suspect]
     Dosage: 6 MG/KG, Q2WK
     Route: 042
     Dates: start: 20100823, end: 20100914
  3. FLUOROURACIL [Suspect]
     Indication: COLORECTAL CANCER
     Route: 040
     Dates: start: 20100624, end: 20100823
  4. AMINOLEBAN [Concomitant]
     Route: 042
  5. IRINOTECAN HYDROCHLORIDE [Concomitant]
     Indication: COLORECTAL CANCER
     Route: 041
     Dates: start: 20100624, end: 20100823
  6. PANITUMUMAB [Suspect]
     Indication: COLORECTAL CANCER
     Dosage: 6 MG/KG, UNK
     Route: 041
     Dates: start: 20100624, end: 20100730
  7. FLUOROURACIL [Suspect]
     Route: 041
     Dates: start: 20100624, end: 20100823
  8. CALCIUM LEVOFOLINATE [Concomitant]
     Indication: COLORECTAL CANCER
     Route: 041
     Dates: start: 20100624, end: 20100823

REACTIONS (6)
  - STOMATITIS [None]
  - NEOPLASM MALIGNANT [None]
  - DERMATITIS [None]
  - HEPATIC FUNCTION ABNORMAL [None]
  - COLORECTAL CANCER [None]
  - ASCITES [None]
